FAERS Safety Report 16736072 (Version 1)
Quarter: 2019Q3

REPORT INFORMATION
  Report Type: Spontaneous
  Country: US (occurrence: US)
  Receive Date: 20190708
  Receipt Date: 20190708
  Transmission Date: 20191005
  Serious: No
  Sender: FDA-Public Use
  Company Number: None

PATIENT
  Age: 70 Year
  Sex: Male

DRUGS (2)
  1. CYCLOBENZAPR TAB [Concomitant]
  2. ERIVEDGE [Suspect]
     Active Substance: VISMODEGIB
     Indication: NEOPLASM MALIGNANT
     Route: 048
     Dates: start: 20190209

REACTIONS (4)
  - Muscle spasms [None]
  - Product dose omission [None]
  - Taste disorder [None]
  - Alopecia [None]

NARRATIVE: CASE EVENT DATE: 20190708
